FAERS Safety Report 10932900 (Version 1)
Quarter: 2015Q1

REPORT INFORMATION
  Report Type: Spontaneous
  Country: US (occurrence: None)
  Receive Date: 20150319
  Receipt Date: 20150319
  Transmission Date: 20150721
  Serious: Yes (Other)
  Sender: FDA-Public Use
  Company Number: 2014CT000219

PATIENT
  Age: 54 Year
  Sex: Female

DRUGS (28)
  1. WELLBUTRIN [Concomitant]
     Active Substance: BUPROPION HYDROCHLORIDE
  2. REGLAN [Concomitant]
     Active Substance: METOCLOPRAMIDE HYDROCHLORIDE
  3. CRESTOR [Concomitant]
     Active Substance: ROSUVASTATIN CALCIUM
  4. METFORMIN [Concomitant]
     Active Substance: METFORMIN HYDROCHLORIDE
  5. LYRICA [Concomitant]
     Active Substance: PREGABALIN
  6. TOPAMAX [Concomitant]
     Active Substance: TOPIRAMATE
  7. PHENTERMINE [Concomitant]
     Active Substance: PHENTERMINE
  8. MIRALAX [Concomitant]
     Active Substance: POLYETHYLENE GLYCOL 3350
  9. KORLYM [Suspect]
     Active Substance: MIFEPRISTONE
     Indication: CUSHING^S SYNDROME
     Dates: start: 20140409
  10. DILAUDID [Concomitant]
     Active Substance: HYDROMORPHONE HYDROCHLORIDE
  11. FAMCICLOVIR. [Concomitant]
     Active Substance: FAMCICLOVIR
  12. NEXIUM [Concomitant]
     Active Substance: ESOMEPRAZOLE MAGNESIUM
  13. RANEXA [Concomitant]
     Active Substance: RANOLAZINE
  14. COLACE [Concomitant]
     Active Substance: DOCUSATE SODIUM
  15. DOSTINEX [Concomitant]
     Active Substance: CABERGOLINE
  16. SLOW MAG [Concomitant]
     Active Substance: MAGNESIUM CHLORIDE
  17. DIFLUCAN [Concomitant]
     Active Substance: FLUCONAZOLE
  18. ZANAFLEX [Concomitant]
     Active Substance: TIZANIDINE HYDROCHLORIDE
  19. DULCOLAX [Concomitant]
     Active Substance: BISACODYL OR DOCUSATE SODIUM
  20. IMITREX [Concomitant]
     Active Substance: SUMATRIPTAN\SUMATRIPTAN SUCCINATE
  21. WARFARIN [Concomitant]
     Active Substance: WARFARIN
  22. RESTASIS [Concomitant]
     Active Substance: CYCLOSPORINE
  23. SYNTHROID [Concomitant]
     Active Substance: LEVOTHYROXINE SODIUM
  24. VITAMIN D [Concomitant]
     Active Substance: CHOLECALCIFEROL
  25. FLONASE [Concomitant]
     Active Substance: FLUTICASONE PROPIONATE
  26. SEROQUEL [Concomitant]
     Active Substance: QUETIAPINE FUMARATE
  27. BYETTA [Concomitant]
     Active Substance: EXENATIDE
  28. FENTANYL. [Concomitant]
     Active Substance: FENTANYL

REACTIONS (4)
  - Spinal fracture [None]
  - Vertebral lesion [None]
  - Fall [None]
  - Fatigue [None]
